FAERS Safety Report 20095878 (Version 3)
Quarter: 2021Q4

REPORT INFORMATION
  Report Type: Report from Study
  Country: LB (occurrence: LB)
  Receive Date: 20211122
  Receipt Date: 20211216
  Transmission Date: 20220303
  Serious: Yes (Other)
  Sender: FDA-Public Use
  Company Number: LB-AMGEN-LBNSL2021180760

PATIENT
  Age: 10 Year
  Sex: Female

DRUGS (1)
  1. BLINCYTO [Suspect]
     Active Substance: BLINATUMOMAB
     Indication: Acute lymphocytic leukaemia
     Dosage: 18.15 MCG IN SODIUM CHLORIDE 0.9% 240 ML IVPB.
     Route: 065
     Dates: start: 20211112

REACTIONS (2)
  - Epilepsy [Unknown]
  - Rash [Unknown]

NARRATIVE: CASE EVENT DATE: 20211113
